FAERS Safety Report 21868141 (Version 3)
Quarter: 2023Q4

REPORT INFORMATION
  Report Type: Report from Study
  Country: US (occurrence: US)
  Receive Date: 20230116
  Receipt Date: 20231201
  Transmission Date: 20240110
  Serious: Yes (Other)
  Sender: FDA-Public Use
  Company Number: US-ABBVIE-4269675

PATIENT
  Age: 79 Year
  Sex: Female

DRUGS (2)
  1. IMBRUVICA [Suspect]
     Active Substance: IBRUTINIB
     Indication: Chronic lymphocytic leukaemia
     Route: 048
     Dates: start: 20170811, end: 202211
  2. IMBRUVICA [Suspect]
     Active Substance: IBRUTINIB
     Indication: Chronic lymphocytic leukaemia
     Route: 048
     Dates: start: 20230716

REACTIONS (12)
  - Surgery [Unknown]
  - Neoplasm malignant [Unknown]
  - Neoplasm skin [Unknown]
  - Oxygen saturation decreased [Recovered/Resolved]
  - Lymphadenopathy [Unknown]
  - Lung operation [Unknown]
  - Heart rate decreased [Recovered/Resolved]
  - Dry skin [Unknown]
  - Blood pressure decreased [Recovered/Resolved]
  - Blood glucose decreased [Unknown]
  - Ear neoplasm [Unknown]
  - Post procedural complication [Unknown]

NARRATIVE: CASE EVENT DATE: 20220901
